FAERS Safety Report 20501573 (Version 1)
Quarter: 2022Q1

REPORT INFORMATION
  Report Type: Spontaneous
  Country: US (occurrence: None)
  Receive Date: 20220218
  Receipt Date: 20220218
  Transmission Date: 20220423
  Serious: Yes (Life-Threatening, Hospitalization, Other)
  Sender: FDA-Public Use
  Company Number: None

PATIENT
  Age: 62 Year
  Sex: Female
  Weight: 54 kg

DRUGS (19)
  1. PEG 3350 [Suspect]
     Active Substance: POLYETHYLENE GLYCOL 3350
     Indication: Bowel preparation
     Dosage: OTHER QUANTITY : 1 PACKET;?OTHER FREQUENCY : HALF AND HALF;?
     Route: 048
     Dates: start: 20220124, end: 20220124
  2. EPINEPHRINE [Concomitant]
     Active Substance: EPINEPHRINE
  3. ESTRADIOL [Concomitant]
     Active Substance: ESTRADIOL
  4. METOPROLOL TARTRATE [Concomitant]
     Active Substance: METOPROLOL TARTRATE
  5. TIMOLOL MALEATE [Concomitant]
     Active Substance: TIMOLOL MALEATE
  6. ZOLMITRIPTAN [Concomitant]
     Active Substance: ZOLMITRIPTAN
  7. CLARITIN-D NOS [Concomitant]
     Active Substance: LORATADINE\PSEUDOEPHEDRINE SULFATE
  8. DAIRY DIGESTANT (LACTASE) [Concomitant]
  9. MIRALAX [Concomitant]
     Active Substance: POLYETHYLENE GLYCOL 3350
  10. PRILOSEC [Concomitant]
     Active Substance: OMEPRAZOLE MAGNESIUM
  11. NASACORT AQ [Concomitant]
     Active Substance: TRIAMCINOLONE ACETONIDE
  12. VITAMINS [Concomitant]
     Active Substance: VITAMINS
  13. VITAMIN C [Concomitant]
     Active Substance: ASCORBIC ACID
  14. VITAMIN D [Concomitant]
     Active Substance: VITAMIN D NOS
  15. VITAMIN E [Concomitant]
     Active Substance: .ALPHA.-TOCOPHEROL
  16. FISH OIL [Concomitant]
     Active Substance: FISH OIL
  17. CALCIUM [Concomitant]
     Active Substance: CALCIUM
  18. MELATONIN [Concomitant]
     Active Substance: MELATONIN
  19. PROBIOTICS NOS [Concomitant]
     Active Substance: PROBIOTICS NOS

REACTIONS (2)
  - Abdominal pain upper [None]
  - Gastric haemorrhage [None]

NARRATIVE: CASE EVENT DATE: 20220124
